FAERS Safety Report 6579767-2 (Version None)
Quarter: 2010Q1

REPORT INFORMATION
  Report Type: 
  Country: None (occurrence: None)
  Receive Date: 20100212
  Receipt Date: 20100208
  Transmission Date: 20100710
  Serious: Yes (Disabling)
  Sender: FDA-Public Use
  Company Number: B0609400A

PATIENT
  Sex: Female
  Weight: 53 kg

DRUGS (4)
  1. MALARONE [Suspect]
     Indication: MALARIA PROPHYLAXIS
     Dosage: 1TAB PER DAY
     Route: 048
     Dates: start: 20060801, end: 20060904
  2. ETHINYLESTRADIOL + PROGESTERONE [Concomitant]
     Indication: CONTRACEPTION
     Dosage: 1TAB PER DAY
     Route: 048
  3. AZINC [Concomitant]
     Dosage: 1UNIT ALTERNATE DAYS
     Route: 048
     Dates: start: 20060801, end: 20060831
  4. MAGNE B6 [Concomitant]
     Dosage: 1UNIT ALTERNATE DAYS
     Route: 048
     Dates: start: 20060801, end: 20060831

REACTIONS (6)
  - CONDITION AGGRAVATED [None]
  - ECZEMA [None]
  - ECZEMA INFECTED [None]
  - INSOMNIA [None]
  - PHOTOSENSITIVITY REACTION [None]
  - SKIN DISORDER [None]
